FAERS Safety Report 4508661-3 (Version None)
Quarter: 2004Q4

REPORT INFORMATION
  Report Type: 
  Country: None (occurrence: None)
  Receive Date: 20041123
  Receipt Date: 20040521
  Transmission Date: 20050328
  Serious: No
  Sender: FDA-Public Use
  Company Number: 2004-02254

PATIENT
  Age: 48 Year
  Sex: Female
  Weight: 72.7 kg

DRUGS (1)
  1. BUPROPION HCL [Suspect]
     Indication: DEPRESSION
     Dosage: 150MG PER DAY
     Route: 048
     Dates: start: 20040504, end: 20040507

REACTIONS (7)
  - DIZZINESS [None]
  - DRUG INEFFECTIVE [None]
  - MENIERE'S DISEASE [None]
  - NAUSEA [None]
  - SUDDEN HEARING LOSS [None]
  - TINNITUS [None]
  - VERTIGO [None]
